FAERS Safety Report 8839903 (Version 1)
Quarter: 2012Q4

REPORT INFORMATION
  Report Type: 
  Country: AU (occurrence: AU)
  Receive Date: 20121015
  Receipt Date: 20121015
  Transmission Date: 20130627
  Serious: Yes (Hospitalization, Other)
  Sender: FDA-Public Use
  Company Number: PHHY2012AU090843

PATIENT
  Age: 48 Year
  Sex: Male

DRUGS (17)
  1. CLOZARIL [Suspect]
     Dates: start: 20030127
  2. CLOZARIL [Suspect]
     Dosage: 300 mg, in nocte
     Dates: start: 2003
  3. CLOZARIL [Suspect]
     Dosage: 250 mg, in nocte
     Dates: start: 2007
  4. CLOZARIL [Suspect]
     Dosage: 450 mg, in nocte
  5. CLOZARIL [Suspect]
     Dates: end: 20120125
  6. VALPROATE SODIUM [Concomitant]
     Dosage: 700 mg, twice daily
     Dates: start: 2004, end: 201206
  7. VALPROATE SODIUM [Concomitant]
     Dosage: 2000 mg, in nocte
     Dates: start: 2006
  8. VALPROATE SODIUM [Concomitant]
     Dosage: 1000 mg, twice daily
     Dates: start: 2008, end: 2012
  9. HALOPERIDOL [Concomitant]
     Dosage: 5 mg, twice daily
  10. MAGMIN [Concomitant]
     Dosage: UNK, twice daily
  11. METFORMIN [Concomitant]
     Dosage: 250 mg, twice daily
  12. OMEPRAZOLE [Concomitant]
     Dosage: 20 mg, in nocte
  13. LITHIUM [Concomitant]
     Dosage: 250 mg, in mane
  14. FOLIC ACID [Concomitant]
     Dosage: 5 mg, in mane
  15. OLANZAPINE [Concomitant]
     Dosage: 10 mg, in nocte
  16. MULTIVITAMINS [Concomitant]
  17. PROMETHAZINE HYDROCHLORIDE [Concomitant]

REACTIONS (9)
  - Eosinophilic colitis [Unknown]
  - Neutropenia [Unknown]
  - Anaemia [Unknown]
  - Electrocardiogram QT prolonged [Unknown]
  - Schizoaffective disorder [Unknown]
  - Delusional perception [Unknown]
  - Mood swings [Unknown]
  - Toxicity to various agents [Unknown]
  - Antipsychotic drug level above therapeutic [Unknown]
